FAERS Safety Report 24313697 (Version 1)
Quarter: 2024Q3

REPORT INFORMATION
  Report Type: Spontaneous
  Country: US (occurrence: None)
  Receive Date: 20240911
  Receipt Date: 20240911
  Transmission Date: 20241017
  Serious: Yes (Hospitalization)
  Sender: Public
  Company Number: None

PATIENT
  Age: 53 Year
  Sex: Female
  Weight: 68.5 kg

DRUGS (9)
  1. CABOZANTINIB [Suspect]
     Active Substance: CABOZANTINIB
     Indication: Renal cell carcinoma
     Dosage: FREQUENCY : DAILY;?
     Route: 048
     Dates: start: 20240828
  2. LEVOTHYROXINE [Concomitant]
     Active Substance: LEVOTHYROXINE\LEVOTHYROXINE SODIUM
     Dates: start: 20230727
  3. VITAMIN D3 [Concomitant]
     Active Substance: CHOLECALCIFEROL
     Dates: start: 20220101
  4. ALBUTEROL [Concomitant]
     Active Substance: ALBUTEROL
     Dates: start: 20240425
  5. TRAMADOL [Concomitant]
     Active Substance: TRAMADOL\TRAMADOL HYDROCHLORIDE
     Dates: start: 20240805
  6. clobetasol topical ointment [Concomitant]
     Dates: start: 20240805
  7. NIFEDIPINE [Concomitant]
     Active Substance: NIFEDIPINE
     Dates: start: 20240720
  8. CARVEDILOL [Concomitant]
     Active Substance: CARVEDILOL
     Dates: start: 20240705
  9. NIVOLUMAB [Suspect]
     Active Substance: NIVOLUMAB

REACTIONS (11)
  - Pancreatic failure [None]
  - Immune-mediated pancreatitis [None]
  - Hyperglycaemic hyperosmolar nonketotic syndrome [None]
  - Diabetes mellitus [None]
  - Hypovolaemia [None]
  - Syncope [None]
  - Hyponatraemia [None]
  - Pseudohyponatraemia [None]
  - Hyperkalaemia [None]
  - Hypertension [None]
  - Blood creatinine increased [None]

NARRATIVE: CASE EVENT DATE: 20240909
